FAERS Safety Report 8499268-4 (Version None)
Quarter: 2012Q3

REPORT INFORMATION
  Report Type: 
  Country: None (occurrence: None)
  Receive Date: 20120710
  Receipt Date: 20120703
  Transmission Date: 20120928
  Serious: Yes (Life-Threatening)
  Sender: FDA-Public Use
  Company Number: PHHO2012US009930

PATIENT
  Sex: Male
  Weight: 104.31 kg

DRUGS (11)
  1. REMERON [Concomitant]
     Indication: BIPOLAR DISORDER
     Dosage: 15 MG, QD
     Dates: start: 20050101
  2. DEPAKOTE [Concomitant]
     Indication: BIPOLAR DISORDER
     Dosage: 500 MG, QD
     Dates: start: 20050101
  3. ALLOPURINOL [Concomitant]
     Indication: GOUT
     Dosage: 360 MG, BID
     Dates: start: 20100622
  4. COLCHICINE [Concomitant]
     Indication: GOUT
     Dosage: 6 MG, QD
     Dates: start: 20100622
  5. ILARIS [Suspect]
     Dosage: DOUBLE BLINDED
     Dates: start: 20110909
  6. PLACEBO [Suspect]
     Indication: GOUTY ARTHRITIS
     Dosage: DOUBLE BLINDED
     Dates: start: 20110909
  7. TRIAMCINOLONE ACETONIDE [Suspect]
     Indication: GOUTY ARTHRITIS
     Dosage: DOUBLE BLINDED
     Dates: start: 20110909
  8. LOSARTAN POTASSIUM [Concomitant]
     Indication: HYPERTENSION
     Dosage: 25 MG, QD
     Dates: start: 20100101
  9. BLINDED NO TREATMENT RECEIVED [Suspect]
     Indication: GOUTY ARTHRITIS
     Dosage: DOUBLE BLINDED
     Dates: start: 20110909
  10. RISPERDAL [Concomitant]
     Indication: BIPOLAR DISORDER
     Dosage: 1 MG, QD
     Dates: start: 20050101
  11. ILARIS [Suspect]
     Indication: GOUTY ARTHRITIS
     Dosage: DOUBLE BLINDED
     Dates: start: 20110909

REACTIONS (1)
  - BLADDER CANCER [None]
